FAERS Safety Report 15172496 (Version 1)
Quarter: 2018Q3

REPORT INFORMATION
  Report Type: Spontaneous
  Country: BR (occurrence: BR)
  Receive Date: 20180720
  Receipt Date: 20180720
  Transmission Date: 20181010
  Serious: Yes (Death, Other)
  Sender: FDA-Public Use
  Company Number: BR-JNJFOC-20180723873

PATIENT

DRUGS (1)
  1. DALINVI [Suspect]
     Active Substance: DARATUMUMAB
     Indication: UNEVALUABLE EVENT
     Route: 065
     Dates: start: 201802

REACTIONS (3)
  - Acute respiratory failure [Fatal]
  - Bronchospasm [Unknown]
  - Infusion related reaction [Not Recovered/Not Resolved]
